FAERS Safety Report 23605489 (Version 1)
Quarter: 2024Q1

REPORT INFORMATION
  Report Type: Spontaneous
  Country: US (occurrence: US)
  Receive Date: 20240307
  Receipt Date: 20240307
  Transmission Date: 20240410
  Serious: Yes (Other)
  Sender: FDA-Public Use
  Company Number: US-SA-SAC20240306000599

PATIENT
  Sex: Male

DRUGS (4)
  1. DUPIXENT [Suspect]
     Active Substance: DUPILUMAB
     Indication: Dermatitis atopic
     Dosage: 300 MG, QOW
     Route: 058
     Dates: start: 2018
  2. OPDIVO [Concomitant]
     Active Substance: NIVOLUMAB
  3. ROSUVASTATIN [Concomitant]
     Active Substance: ROSUVASTATIN
  4. SOTALOL [Concomitant]
     Active Substance: SOTALOL

REACTIONS (1)
  - Oesophageal carcinoma [Not Recovered/Not Resolved]
